FAERS Safety Report 8896712 (Version 1)
Quarter: 2012Q4

REPORT INFORMATION
  Report Type: Spontaneous
  Country: US (occurrence: None)
  Receive Date: 20121102
  Receipt Date: 20121102
  Transmission Date: 20130627
  Serious: Yes (Other)
  Sender: FDA-Public Use
  Company Number: FK201203201

PATIENT
  Age: 56 Year
  Sex: Male

DRUGS (4)
  1. CLINDAMYCIN [Suspect]
  2. LEVOTHYROXINE (LEVOTHYROXINE) [Concomitant]
  3. TRAZODONE (TRAZODONE) [Concomitant]
  4. DESVENLAFAXIN (DESVENLAFAXIN) [Concomitant]

REACTIONS (3)
  - Ageusia [None]
  - Glossodynia [None]
  - Dry mouth [None]
